FAERS Safety Report 23830721 (Version 3)
Quarter: 2024Q3

REPORT INFORMATION
  Report Type: Report from Study
  Country: US (occurrence: US)
  Receive Date: 20240508
  Receipt Date: 20240801
  Transmission Date: 20241017
  Serious: No
  Sender: LUNDBECK
  Company Number: US-LUNDBECK-DKLU3077719

PATIENT

DRUGS (8)
  1. VYEPTI [Suspect]
     Active Substance: EPTINEZUMAB\EPTINEZUMAB-JJMR
     Dosage: 100 003
     Route: 041
     Dates: start: 20240318
  2. VYEPTI [Suspect]
     Active Substance: EPTINEZUMAB\EPTINEZUMAB-JJMR
     Indication: Migraine
  3. TOPIRAMATE [Concomitant]
     Active Substance: TOPIRAMATE
  4. TOPIRAMATE [Concomitant]
     Active Substance: TOPIRAMATE
     Indication: Migraine
  5. IMITREX [Concomitant]
     Active Substance: SUMATRIPTAN SUCCINATE
  6. IMITREX [Concomitant]
     Active Substance: SUMATRIPTAN SUCCINATE
     Indication: Migraine
  7. DICLOFENAC [Concomitant]
     Active Substance: DICLOFENAC
  8. DICLOFENAC [Concomitant]
     Active Substance: DICLOFENAC
     Indication: Migraine

REACTIONS (1)
  - Drug ineffective [Not Recovered/Not Resolved]
